FAERS Safety Report 20004708 (Version 1)
Quarter: 2021Q4

REPORT INFORMATION
  Report Type: Spontaneous
  Country: GB (occurrence: GB)
  Receive Date: 20211027
  Receipt Date: 20211027
  Transmission Date: 20220303
  Serious: Yes (Disabling, Other)
  Sender: FDA-Public Use
  Company Number: None

PATIENT
  Age: 22 Year
  Sex: Female
  Weight: 44 kg

DRUGS (2)
  1. SULFASALAZINE [Suspect]
     Active Substance: SULFASALAZINE
     Indication: Arthritis
     Dosage: 1500 MG, UNK
     Route: 048
     Dates: start: 20210820, end: 20210929
  2. METHOTREXATE [Concomitant]
     Active Substance: METHOTREXATE
     Indication: Arthritis
     Dosage: UNK

REACTIONS (18)
  - Mental disorder [Recovering/Resolving]
  - Depression suicidal [Unknown]
  - Hallucination, auditory [Unknown]
  - Depression [Unknown]
  - Anger [Unknown]
  - Mania [Unknown]
  - Derealisation [Unknown]
  - Headache [Unknown]
  - Confusional state [Unknown]
  - Insomnia [Unknown]
  - Asthenia [Unknown]
  - Fatigue [Unknown]
  - Toothache [Unknown]
  - Delusion [Unknown]
  - Memory impairment [Unknown]
  - Mental impairment [Unknown]
  - Fatigue [Unknown]
  - Mood swings [Unknown]
